FAERS Safety Report 12600629 (Version 3)
Quarter: 2017Q1

REPORT INFORMATION
  Report Type: Report from Study
  Country: BR (occurrence: BR)
  Receive Date: 20160727
  Receipt Date: 20170203
  Transmission Date: 20170428
  Serious: Yes (Hospitalization)
  Sender: FDA-Public Use
  Company Number: PHHY2016BR102447

PATIENT
  Sex: Female
  Weight: 55 kg

DRUGS (2)
  1. EXJADE [Suspect]
     Active Substance: DEFERASIROX
     Dosage: 500 MG, QD
  2. EXJADE [Suspect]
     Active Substance: DEFERASIROX
     Indication: MYELODYSPLASTIC SYNDROME
     Dosage: 10 MG/KG, QD (500 MG ONCE DAILY)
     Route: 048
     Dates: start: 201510

REACTIONS (18)
  - Hypophagia [Unknown]
  - Infarction [Unknown]
  - Movement disorder [Unknown]
  - Hypersensitivity [Unknown]
  - Skin infection [Unknown]
  - Skin exfoliation [Unknown]
  - Nodule [Unknown]
  - Skin discolouration [Unknown]
  - Thrombosis [Unknown]
  - Nosocomial infection [Unknown]
  - Pyrexia [Unknown]
  - Peripheral swelling [Recovering/Resolving]
  - Infection [Unknown]
  - Drug hypersensitivity [Unknown]
  - Nausea [Unknown]
  - Serum ferritin increased [Unknown]
  - Asthenia [Unknown]
  - Weight decreased [Unknown]
